FAERS Safety Report 7463818-7 (Version None)
Quarter: 2011Q2

REPORT INFORMATION
  Report Type: 
  Country: None (occurrence: None)
  Receive Date: 20110506
  Receipt Date: 20110425
  Transmission Date: 20111010
  Serious: Yes (Other)
  Sender: FDA-Public Use
  Company Number: US-ABBOTT-11P-163-0719709-00

PATIENT
  Sex: Female
  Weight: 59.02 kg

DRUGS (7)
  1. AMITRIPTYLINE HCL [Concomitant]
     Indication: SLEEP DISORDER
  2. FOLIC ACID [Concomitant]
     Indication: VITAMIN SUPPLEMENTATION
  3. AMITRIPTYLINE HCL [Concomitant]
     Indication: DEPRESSION
  4. NEXIUM [Concomitant]
     Indication: CROHN'S DISEASE
  5. ZOFRAN [Concomitant]
     Indication: VOMITING
  6. HUMIRA [Suspect]
     Indication: CROHN'S DISEASE
     Dates: start: 20080101
  7. PRENATAL VITAMINS [Concomitant]
     Indication: VITAMIN SUPPLEMENTATION

REACTIONS (1)
  - VOMITING [None]
